FAERS Safety Report 8894518 (Version 1)
Quarter: 2012Q4

REPORT INFORMATION
  Report Type: 
  Country: US (occurrence: US)
  Receive Date: 20121108
  Receipt Date: 20121108
  Transmission Date: 20130627
  Serious: Yes (Other)
  Sender: FDA-Public Use
  Company Number: US-AMGEN-USASP2012070771

PATIENT

DRUGS (5)
  1. NPLATE [Suspect]
     Indication: AUTOIMMUNE THROMBOCYTOPENIA
     Dosage: 1 mug/kg, qwk
     Dates: start: 201210
  2. RITUXAN [Concomitant]
  3. OCTREOTIDE [Concomitant]
  4. AMICAR [Concomitant]
  5. NEXIUM                             /01479302/ [Concomitant]

REACTIONS (3)
  - Platelet count decreased [Not Recovered/Not Resolved]
  - Haemorrhage [Not Recovered/Not Resolved]
  - Drug ineffective [Not Recovered/Not Resolved]
